FAERS Safety Report 12665761 (Version 2)
Quarter: 2016Q3

REPORT INFORMATION
  Report Type: Spontaneous
  Country: US (occurrence: US)
  Receive Date: 20160818
  Receipt Date: 20160901
  Transmission Date: 20161109
  Serious: Yes (Hospitalization)
  Sender: FDA-Public Use
  Company Number: US-RELYPSA-RLY2016001826

PATIENT
  Sex: Male

DRUGS (15)
  1. VELTASSA [Suspect]
     Active Substance: PATIROMER
     Indication: HYPERKALAEMIA
     Dosage: 16.8 G, QD
     Route: 048
  2. FOLIC ACID. [Concomitant]
     Active Substance: FOLIC ACID
  3. SODIUM BICARBONATE. [Concomitant]
     Active Substance: SODIUM BICARBONATE
  4. PROTONIX [Concomitant]
     Active Substance: PANTOPRAZOLE SODIUM
  5. VITAMIN B1 [Concomitant]
     Active Substance: THIAMINE HYDROCHLORIDE
  6. ESCITALOPRAM OXALATE. [Concomitant]
     Active Substance: ESCITALOPRAM OXALATE
  7. NADOLOL. [Concomitant]
     Active Substance: NADOLOL
  8. TORSEMIDE. [Concomitant]
     Active Substance: TORSEMIDE
  9. LACTULOSE. [Concomitant]
     Active Substance: LACTULOSE
  10. SPIRONOLACTONE. [Concomitant]
     Active Substance: SPIRONOLACTONE
  11. XIFAXAN [Concomitant]
     Active Substance: RIFAXIMIN
  12. ZAROXOLYN [Concomitant]
     Active Substance: METOLAZONE
  13. ASPIR-81 [Concomitant]
     Active Substance: ASPIRIN
  14. MIDODRINE HCL [Concomitant]
     Active Substance: MIDODRINE HYDROCHLORIDE
  15. REMERON [Concomitant]
     Active Substance: MIRTAZAPINE

REACTIONS (1)
  - Liver transplant [Unknown]
